FAERS Safety Report 6405387-6 (Version None)
Quarter: 2009Q4

REPORT INFORMATION
  Report Type: 
  Country: None (occurrence: None)
  Receive Date: 20091016
  Receipt Date: 20091016
  Transmission Date: 20100525
  Serious: No
  Sender: FDA-Public Use
  Company Number: None

PATIENT
  Age: 75 Year
  Sex: Female
  Weight: 65.7716 kg

DRUGS (1)
  1. METHYLPREDNISOLONE 4MG TAB [Suspect]
     Dosage: 6-DAY PACKET 1/6 2/5 3/4 4/3 2/2 6/1
     Dates: start: 20090907, end: 20090912

REACTIONS (5)
  - DRUG DISPENSING ERROR [None]
  - HEART RATE INCREASED [None]
  - LETHARGY [None]
  - NAUSEA [None]
  - VOMITING [None]
